FAERS Safety Report 15587602 (Version 1)
Quarter: 2018Q4

REPORT INFORMATION
  Report Type: Spontaneous
  Country: US (occurrence: US)
  Receive Date: 20181106
  Receipt Date: 20181106
  Transmission Date: 20190205
  Serious: Yes (Hospitalization, Other)
  Sender: FDA-Public Use
  Company Number: None

PATIENT
  Age: 32 Year
  Sex: Male
  Weight: 92.6 kg

DRUGS (2)
  1. BIKTARVY [Suspect]
     Active Substance: BICTEGRAVIR SODIUM\EMTRICITABINE\TENOFOVIR ALAFENAMIDE FUMARATE
     Indication: HIV INFECTION
     Route: 048
     Dates: start: 20180417
  2. TRIAMCINOLONE ACETATE 0.5% TOPICAL OINTMENT [Concomitant]
     Dates: start: 20180712, end: 20181106

REACTIONS (4)
  - Pain in extremity [None]
  - Blood creatine phosphokinase increased [None]
  - Back pain [None]
  - Chromaturia [None]

NARRATIVE: CASE EVENT DATE: 20181031
